FAERS Safety Report 7942854-8 (Version None)
Quarter: 2011Q4

REPORT INFORMATION
  Report Type: 
  Country: None (occurrence: None)
  Receive Date: 20111122
  Receipt Date: 20110816
  Transmission Date: 20120403
  Serious: No
  Sender: FDA-Public Use
  Company Number: PHHY2011US68823

PATIENT
  Age: 57 Year
  Sex: Female
  Weight: 66.9963 kg

DRUGS (7)
  1. MACRODANTIN (NITROFURANTOIN) 06/--/2006 TO UNK [Concomitant]
  2. FEXOFENADINE (FEXOFENADINE) 12/--/2006 TO UNK [Concomitant]
  3. GILENYA [Suspect]
     Indication: MULTIPLE SCLEROSIS
     Dosage: 0.5 MG, QD, ORAL
     Route: 048
     Dates: start: 20110715, end: 20110727
  4. BETIMOL (TIMOLOL), 5% 12/--/2006 TO UNK [Concomitant]
  5. VITAMIN D (ERGOCALCIFEROL) 06/--/2006 TO UNK [Concomitant]
  6. WELLBUTRIN (BUPROPION HYDROCHLORIDE) 03/--/2009 TO UNK [Concomitant]
  7. PREMPRO (ESTROGENS CONJUGATED, MEDROXYPROGESTERONE ACETATE) 06/--/2006 [Concomitant]

REACTIONS (5)
  - SINUS BRADYCARDIA [None]
  - FATIGUE [None]
  - ASTHENIA [None]
  - OEDEMA PERIPHERAL [None]
  - DIZZINESS [None]
